FAERS Safety Report 11201336 (Version 1)
Quarter: 2015Q2

REPORT INFORMATION
  Report Type: Spontaneous
  Country: US (occurrence: None)
  Receive Date: 20150618
  Receipt Date: 20150618
  Transmission Date: 20150821
  Serious: Yes (Hospitalization)
  Sender: FDA-Public Use
  Company Number: None

PATIENT
  Age: 64 Year
  Sex: Male
  Weight: 58.97 kg

DRUGS (1)
  1. HIZENTRA [Suspect]
     Active Substance: HUMAN IMMUNOGLOBULIN G
     Indication: IMMUNODEFICIENCY COMMON VARIABLE
     Dosage: 10GM=50ML WEEKLY SUBCUTANEOUS
     Route: 058
     Dates: start: 20150610

REACTIONS (3)
  - Blood pressure increased [None]
  - Heart rate increased [None]
  - Throat tightness [None]

NARRATIVE: CASE EVENT DATE: 20150610
